FAERS Safety Report 7392618-1 (Version None)
Quarter: 2011Q1

REPORT INFORMATION
  Report Type: 
  Country: None (occurrence: None)
  Receive Date: 20110324
  Receipt Date: 20110223
  Transmission Date: 20110831
  Serious: Yes (Other)
  Sender: FDA-Public Use
  Company Number: 2011US0074

PATIENT
  Sex: Female
  Weight: 99.7913 kg

DRUGS (1)
  1. ANAKINRA (ANAKINRA) [Suspect]
     Indication: JUVENILE ARTHRITIS
     Dosage: 100 MG, 1 IN 1 D, SUBCUTANEOUS
     Route: 058

REACTIONS (4)
  - CAESAREAN SECTION [None]
  - CERVIX DYSTOCIA [None]
  - PREGNANCY [None]
  - DRUG EXPOSURE DURING PREGNANCY [None]
